FAERS Safety Report 21795115 (Version 1)
Quarter: 2022Q4

REPORT INFORMATION
  Report Type: Report from Study
  Country: US (occurrence: US)
  Receive Date: 20221229
  Receipt Date: 20221229
  Transmission Date: 20230113
  Serious: Yes (Hospitalization)
  Sender: FDA-Public Use
  Company Number: US-TASMAN PHARMA, INC.-2022TSM01345

PATIENT

DRUGS (1)
  1. CLOZAPINE [Suspect]
     Active Substance: CLOZAPINE
     Dosage: UNK

REACTIONS (16)
  - Acute respiratory failure [Unknown]
  - Schizoaffective disorder depressive type [Unknown]
  - Urinary tract infection [Unknown]
  - Hyperosmolar state [Unknown]
  - COVID-19 [Unknown]
  - Decubitus ulcer [Unknown]
  - Tissue injury [Unknown]
  - Muscular weakness [Unknown]
  - Coordination abnormal [Unknown]
  - Asthenia [Unknown]
  - Benign prostatic hyperplasia [Unknown]
  - Gait disturbance [Unknown]
  - Hypernatraemia [Unknown]
  - Atrial fibrillation [Unknown]
  - Pneumonia [Unknown]
  - Essential hypertension [Unknown]
